FAERS Safety Report 10044951 (Version 1)
Quarter: 2014Q1

REPORT INFORMATION
  Report Type: Spontaneous
  Country: IT (occurrence: IT)
  Receive Date: 20140328
  Receipt Date: 20140328
  Transmission Date: 20141002
  Serious: Yes (Other)
  Sender: FDA-Public Use
  Company Number: IT-INCYTE CORPORATION-2014IN000812

PATIENT
  Age: 46 Year
  Sex: Male

DRUGS (4)
  1. JAKAVI [Suspect]
     Dosage: 15 MG, BID
     Route: 065
  2. JAKAVI [Suspect]
     Dosage: 10 MG, BID
     Route: 065
  3. IMATINIB [Suspect]
     Indication: CHRONIC MYELOID LEUKAEMIA
     Dosage: 400 MG, DAILY
     Route: 065
  4. IMATINIB [Suspect]
     Dosage: 300 MG, DAILY
     Route: 065

REACTIONS (3)
  - Haematotoxicity [Unknown]
  - Anaemia [Unknown]
  - Thrombocytopenia [Unknown]
